FAERS Safety Report 5384785-6 (Version None)
Quarter: 2007Q3

REPORT INFORMATION
  Report Type: 
  Country: None (occurrence: None)
  Receive Date: 20070711
  Receipt Date: 20070629
  Transmission Date: 20080115
  Serious: Yes (Other)
  Sender: FDA-Public Use
  Company Number: US-PFIZER INC-2007055036

PATIENT
  Age: 51 Year
  Sex: Female
  Weight: 83.5 kg

DRUGS (8)
  1. CHANTIX [Suspect]
     Indication: EX-SMOKER
  2. CLINDAMYCIN HCL [Suspect]
     Indication: SINUSITIS
     Dates: start: 20070101, end: 20070101
  3. NOVOLIN 50/50 [Concomitant]
  4. ALL OTHER THERAPEUTIC PRODUCTS [Concomitant]
  5. HYDROCHLOROTHIAZIDE [Concomitant]
  6. ZYRTEC-D 12 HOUR [Concomitant]
  7. CITALOPRAM HYDROBROMIDE [Concomitant]
  8. BUSPIRONE [Concomitant]

REACTIONS (8)
  - BLOOD GLUCOSE INCREASED [None]
  - DIARRHOEA [None]
  - GLOSSITIS [None]
  - LIVER DISORDER [None]
  - ORAL PAIN [None]
  - PHARYNGOLARYNGEAL PAIN [None]
  - STOMACH DISCOMFORT [None]
  - VOMITING [None]
